FAERS Safety Report 14699889 (Version 3)
Quarter: 2019Q4

REPORT INFORMATION
  Report Type: Spontaneous
  Country: SI (occurrence: SI)
  Receive Date: 20180330
  Receipt Date: 20191126
  Transmission Date: 20200122
  Serious: Yes (Other)
  Sender: FDA-Public Use
  Company Number: SI-MYLANLABS-2018M1019295

PATIENT
  Age: 52 Year
  Sex: Female

DRUGS (4)
  1. PARICALCITOL. [Suspect]
     Active Substance: PARICALCITOL
     Indication: PROTEINURIA
     Dosage: 2 MICROGRAM, QD
  2. PARICALCITOL. [Suspect]
     Active Substance: PARICALCITOL
     Indication: FABRY^S DISEASE
     Dosage: 4 MICROGRAM, QD
  3. AGALSIDASE ALFA [Concomitant]
     Active Substance: AGALSIDASE ALFA
     Dosage: UNK
  4. PARICALCITOL. [Suspect]
     Active Substance: PARICALCITOL
     Dosage: 1 MICROGRAM, QD

REACTIONS (4)
  - Cardiac function test abnormal [Recovered/Resolved]
  - Renal impairment [Recovered/Resolved]
  - Off label use [Unknown]
  - Condition aggravated [Recovered/Resolved]
